FAERS Safety Report 9846735 (Version 2)
Quarter: 2014Q1

REPORT INFORMATION
  Report Type: Spontaneous
  Country: IT (occurrence: IT)
  Receive Date: 20140127
  Receipt Date: 20140131
  Transmission Date: 20141002
  Serious: Yes (Other)
  Sender: FDA-Public Use
  Company Number: IT-TEVA-458111ISR

PATIENT
  Age: 64 Year
  Sex: Male
  Weight: 72 kg

DRUGS (1)
  1. FLUOROURACILE TEVA [Suspect]
     Indication: CARCINOID TUMOUR OF THE PANCREAS
     Dosage: 3628 MILLIGRAM DAILY;
     Route: 042
     Dates: start: 20130521, end: 20131008

REACTIONS (2)
  - Blood bilirubin increased [Recovered/Resolved]
  - Neutropenia [Recovered/Resolved]
